FAERS Safety Report 23670562 (Version 1)
Quarter: 2024Q1

REPORT INFORMATION
  Report Type: Spontaneous
  Country: IT (occurrence: IT)
  Receive Date: 20240326
  Receipt Date: 20240326
  Transmission Date: 20240410
  Serious: Yes (Other)
  Sender: FDA-Public Use
  Company Number: IT-MINISAL02-975020

PATIENT
  Age: 66 Year
  Sex: Female

DRUGS (2)
  1. PEMETREXED [Suspect]
     Active Substance: PEMETREXED
     Indication: Lung adenocarcinoma stage IV
     Dosage: 700 MILLIGRAM, 21 DAYS (1 CYCLICAL)
     Route: 042
     Dates: start: 20220916, end: 20231128
  2. DENOSUMAB [Suspect]
     Active Substance: DENOSUMAB
     Indication: Metastatic bone disease prophylaxis
     Dosage: 120 MILLIGRAM, EVERY 28 DAYS (1 CYCLICAL)
     Route: 058
     Dates: start: 20220121, end: 20230907

REACTIONS (1)
  - Osteonecrosis of jaw [Recovered/Resolved with Sequelae]

NARRATIVE: CASE EVENT DATE: 20231109
